FAERS Safety Report 10988887 (Version 2)
Quarter: 2015Q2

REPORT INFORMATION
  Report Type: Spontaneous
  Country: US (occurrence: US)
  Receive Date: 20150405
  Receipt Date: 20150525
  Transmission Date: 20150821
  Serious: No
  Sender: FDA-Public Use
  Company Number: US-JNJFOC-20141118807

PATIENT
  Age: 56 Year
  Sex: Male

DRUGS (2)
  1. REMICADE [Suspect]
     Active Substance: INFLIXIMAB
     Indication: PSORIASIS
     Dosage: HAS RECEIVED 13 INFUSIONS
     Route: 042
     Dates: start: 20141124, end: 20141124
  2. REMICADE [Suspect]
     Active Substance: INFLIXIMAB
     Indication: PSORIASIS
     Route: 042
     Dates: start: 201303

REACTIONS (3)
  - Product use issue [Unknown]
  - Factor V deficiency [Unknown]
  - Muscle spasms [Recovered/Resolved]
